FAERS Safety Report 7948437-8 (Version None)
Quarter: 2011Q4

REPORT INFORMATION
  Report Type: 
  Country: None (occurrence: None)
  Receive Date: 20111125
  Receipt Date: 20111117
  Transmission Date: 20120403
  Serious: Yes (Death)
  Sender: FDA-Public Use
  Company Number: TCI2011A06147

PATIENT
  Age: 63 Year
  Sex: Female

DRUGS (7)
  1. MIGLITOL [Suspect]
     Indication: DIABETES MELLITUS
     Dosage: 150 MG (50 MG, 3 IN 1 D) PER ORAL
     Route: 048
     Dates: start: 20111012, end: 20111111
  2. AMARYL [Suspect]
     Indication: DIABETES MELLITUS
     Dosage: 6 MG (2 MG, 3 IN 1 D) PER ORAL
     Route: 048
     Dates: start: 20110831, end: 20111108
  3. NESINA [Suspect]
     Indication: DIABETES MELLITUS
     Dosage: 25 MG (25 MG, 1 IN 1 D) PER ORAL
     Route: 048
     Dates: start: 20111012, end: 20111111
  4. CANDESARTAN CILEXETIL [Concomitant]
  5. NORVASC [Concomitant]
  6. LANTUS [Concomitant]
  7. ACTOS [Suspect]
     Indication: DIABETES MELLITUS
     Dosage: 15 MG (15 MG, 1 IN 1 D) PER ORAL
     Route: 048
     Dates: start: 20110905, end: 20111108

REACTIONS (8)
  - ACUTE MYOCARDIAL INFARCTION [None]
  - DECREASED APPETITE [None]
  - GLYCOSYLATED HAEMOGLOBIN INCREASED [None]
  - BLOOD GLUCOSE INCREASED [None]
  - NEUROSIS [None]
  - CORONARY ARTERY STENOSIS [None]
  - HYPOGLYCAEMIA [None]
  - ALTERED STATE OF CONSCIOUSNESS [None]
